FAERS Safety Report 6079875-9 (Version None)
Quarter: 2009Q1

REPORT INFORMATION
  Report Type: 
  Country: None (occurrence: None)
  Receive Date: 20090212
  Receipt Date: 20090130
  Transmission Date: 20090719
  Serious: Yes (Hospitalization)
  Sender: FDA-Public Use
  Company Number: DSA_33133_2009

PATIENT
  Age: 80 Year
  Sex: Female

DRUGS (6)
  1. CALNATE /00574902/ (CALNATE - ENALAPRIL MALEATE) (NOT SPECIFIED) [Suspect]
     Indication: HYPERTENSION
     Route: 048
     Dates: end: 20090128
  2. SIGMART (SIGMART - NICORANDIL) (NOT SPECIFIED) [Suspect]
     Indication: DRUG USE FOR UNKNOWN INDICATION
     Dosage: (DF)
  3. CEREKINON (UNKNOWN) [Concomitant]
  4. COMELIAN (UNKNOWN) [Concomitant]
  5. DEPAS (UNKNOWN) [Concomitant]
  6. SELBEX (UNKNOWN) [Concomitant]

REACTIONS (1)
  - PRINZMETAL ANGINA [None]
